FAERS Safety Report 7493067-8 (Version None)
Quarter: 2011Q2

REPORT INFORMATION
  Report Type: 
  Country: None (occurrence: None)
  Receive Date: 20110520
  Receipt Date: 20110512
  Transmission Date: 20111010
  Serious: Yes (Hospitalization)
  Sender: FDA-Public Use
  Company Number: US-PFIZER INC-2011102876

PATIENT
  Sex: Female
  Weight: 68.027 kg

DRUGS (6)
  1. NALTREXONE [Concomitant]
     Dosage: 50 MG, 1X/DAY
  2. IBUPROFEN [Concomitant]
     Dosage: 800 MG, UNK
  3. TRAMADOL [Concomitant]
     Indication: HEADACHE
     Dosage: 50 MG, UNK
  4. PRISTIQ [Suspect]
     Indication: DEPRESSION
     Dosage: 50 MG, 1X/DAY
     Route: 048
     Dates: start: 20110301
  5. TRAZODONE [Concomitant]
     Indication: INSOMNIA
     Dosage: 150 MG, 1X/DAY
  6. REMERON [Concomitant]
     Indication: INSOMNIA
     Dosage: 15 MG, 1X/DAY

REACTIONS (7)
  - HEADACHE [None]
  - NERVOUSNESS [None]
  - DEPRESSION [None]
  - HYPERHIDROSIS [None]
  - NAUSEA [None]
  - RESTLESSNESS [None]
  - IRRITABILITY [None]
